FAERS Safety Report 26141897 (Version 1)
Quarter: 2025Q4

REPORT INFORMATION
  Report Type: Spontaneous
  Country: GB (occurrence: GB)
  Receive Date: 20251210
  Receipt Date: 20251210
  Transmission Date: 20260117
  Serious: Yes (Other)
  Sender: MYLAN
  Company Number: None

PATIENT
  Age: 55 Year
  Sex: Female
  Weight: 85 kg

DRUGS (6)
  1. ATORVASTATIN [Suspect]
     Active Substance: ATORVASTATIN
     Indication: Blood cholesterol
     Dosage: 20 MILLIGRAM, QD
     Dates: start: 20241112
  2. COCODAMOL [Concomitant]
     Active Substance: ACETAMINOPHEN\CODEINE PHOSPHATE
     Indication: Pain
     Dosage: 6 HOURLY, QID (TAKE ONE OR TWO CAPSULES UPTO FOUR TIMES DAILY FOR PAIN. CONTAINS PARACETAMOL AND CODEINE)
     Dates: start: 20251121, end: 20251203
  3. PROCHLORPERAZINE [Concomitant]
     Active Substance: PROCHLORPERAZINE
     Indication: Nausea
     Dosage: 1 DOSAGE FORM, BID (TAKE ONE UP TO TWICE PER DAY AS DIRECTED BY THE ENT TEAM FOR NAUSEA )
     Dates: start: 20251121
  4. CARBOXYMETHYLCELLULOSE SODIUM [Concomitant]
     Active Substance: CARBOXYMETHYLCELLULOSE SODIUM
     Dosage: USE AS DIRECTED (CONTAINS CARMELLOSE 0.5 PERCENT)
  5. LANSOPRAZOLE [Concomitant]
     Active Substance: LANSOPRAZOLE
     Dosage: 1 DOSAGE FORM, QD (TAKE ONE ONCE DAILY)
     Dates: start: 20250529
  6. SUMATRIPTAN [Concomitant]
     Active Substance: SUMATRIPTAN
     Indication: Headache
     Dosage: 1 DOSAGE FORM (TAKE ONE AS DIRECTED FOR HEADACHE. DOSE MAY BE ...)

REACTIONS (2)
  - Muscle spasms [Not Recovered/Not Resolved]
  - Hypoaesthesia [Not Recovered/Not Resolved]
